FAERS Safety Report 23323880 (Version 3)
Quarter: 2024Q1

REPORT INFORMATION
  Report Type: Report from Study
  Country: US (occurrence: US)
  Receive Date: 20231221
  Receipt Date: 20240304
  Transmission Date: 20240410
  Serious: Yes (Other)
  Sender: FDA-Public Use
  Company Number: US-ABBVIE-5546983

PATIENT
  Age: 71 Year
  Sex: Female
  Weight: 72.574 kg

DRUGS (3)
  1. CREON [Suspect]
     Active Substance: PANCRELIPASE AMYLASE\PANCRELIPASE LIPASE\PANCRELIPASE PROTEASE
     Indication: Pancreatic failure
     Dosage: FORM STRENGTH: 36000 UNIT?FREQUENCY TEXT: 3 CAPSULES 3 TIMES A DAY WITH MEAL
     Route: 048
     Dates: start: 202209
  2. OMEPRAZOLE [Concomitant]
     Active Substance: OMEPRAZOLE
     Indication: Gastrooesophageal reflux disease
     Dosage: 40 MILLIGRAM
  3. LEXIPRON [Concomitant]
     Indication: Diarrhoea

REACTIONS (2)
  - Arthritis [Not Recovered/Not Resolved]
  - Sinus disorder [Recovering/Resolving]

NARRATIVE: CASE EVENT DATE: 20230601
